FAERS Safety Report 9105596 (Version 1)
Quarter: 2013Q1

REPORT INFORMATION
  Report Type: Spontaneous
  Country: TR (occurrence: TR)
  Receive Date: 20130220
  Receipt Date: 20130220
  Transmission Date: 20140127
  Serious: Yes (Life-Threatening, Other)
  Sender: FDA-Public Use
  Company Number: TR-ASTELLAS-2013EU001511

PATIENT
  Sex: Male

DRUGS (3)
  1. PROGRAF [Suspect]
     Indication: RENAL TRANSPLANT
     Dosage: 2 UNK, BID
     Route: 048
     Dates: start: 20130116, end: 20130125
  2. NEORAL [Suspect]
     Indication: RENAL TRANSPLANT
     Dosage: 75 UNK, BID
     Route: 048
     Dates: start: 20130125, end: 20130202
  3. MYCOPHENOLATE MOFETIL [Concomitant]
     Dosage: UNK
     Route: 065

REACTIONS (2)
  - Posterior reversible encephalopathy syndrome [Recovered/Resolved]
  - Renal vein thrombosis [Unknown]
